FAERS Safety Report 18437448 (Version 10)
Quarter: 2021Q2

REPORT INFORMATION
  Report Type: Report from Study
  Country: CA (occurrence: CA)
  Receive Date: 20201028
  Receipt Date: 20210510
  Transmission Date: 20210717
  Serious: Yes (Hospitalization, Other)
  Sender: FDA-Public Use
  Company Number: CA-SHIRE-CA201943660

PATIENT
  Age: 66 Year
  Sex: Female
  Weight: 42 kg

DRUGS (23)
  1. TEDUGLUTIDE [Suspect]
     Active Substance: TEDUGLUTIDE
     Indication: SHORT-BOWEL SYNDROME
     Dosage: 2.25 MILLIGRAM, 1X/DAY:QD
     Route: 065
     Dates: start: 20160815
  2. PROLIA [Concomitant]
     Active Substance: DENOSUMAB
     Indication: PRODUCT USED FOR UNKNOWN INDICATION
     Dosage: UNK, INTRAMUSCULAR
     Route: 030
  3. METRONIDAZOLE. [Concomitant]
     Active Substance: METRONIDAZOLE
     Indication: GASTROINTESTINAL BACTERIAL OVERGROWTH
     Dosage: UNK
     Route: 065
  4. OLESTYR [Concomitant]
     Active Substance: CHOLESTYRAMINE
     Indication: PRODUCT USED FOR UNKNOWN INDICATION
     Dosage: 1/4 PACKET
     Route: 065
  5. AMILORIDE [Concomitant]
     Active Substance: AMILORIDE
     Indication: PRODUCT USED FOR UNKNOWN INDICATION
     Dosage: 10 MILLIGRAM, QD
     Route: 048
  6. LOMOTIL [LOPERAMIDE HYDROCHLORIDE] [Concomitant]
     Active Substance: LOPERAMIDE HYDROCHLORIDE
     Indication: PRODUCT USED FOR UNKNOWN INDICATION
     Dosage: TWICE A DAY
     Route: 065
  7. DOXYCYCLINE. [Concomitant]
     Active Substance: DOXYCYCLINE
     Indication: GASTROINTESTINAL BACTERIAL OVERGROWTH
     Dosage: 100 MILLIGRAM, TWICE A DAY
     Route: 065
     Dates: start: 20200922
  8. NORVASC [Concomitant]
     Active Substance: AMLODIPINE BESYLATE
     Indication: PRODUCT USED FOR UNKNOWN INDICATION
     Dosage: 10 MILLIGRAM, QD
     Route: 048
  9. NEXIUM I.V. [Concomitant]
     Active Substance: ESOMEPRAZOLE SODIUM
     Indication: PRODUCT USED FOR UNKNOWN INDICATION
     Dosage: 40 MILLIGRAM, QD
     Route: 048
  10. SANDOSTATIN [Concomitant]
     Active Substance: OCTREOTIDE ACETATE
     Indication: PRODUCT USED FOR UNKNOWN INDICATION
     Dosage: 40 MILLIGRAM, INTRAMUSCULAR
     Route: 030
     Dates: end: 20160629
  11. REFLEXAN [Concomitant]
     Active Substance: CYCLOBENZAPRINE
     Indication: OVERGROWTH BACTERIAL
     Dosage: UNK
     Route: 065
  12. TEDUGLUTIDE [Suspect]
     Active Substance: TEDUGLUTIDE
     Indication: SHORT-BOWEL SYNDROME
     Dosage: 2.25 MILLIGRAM, 1X/DAY:QD
     Route: 065
     Dates: start: 20160815
  13. TEDUGLUTIDE [Suspect]
     Active Substance: TEDUGLUTIDE
     Indication: SHORT-BOWEL SYNDROME
     Dosage: 2.25 MILLIGRAM, 1X/DAY:QD
     Route: 065
     Dates: start: 20160815
  14. VITAMIN D 2000 [Concomitant]
     Active Substance: VITAMIN D NOS
     Indication: OSTEOPOROSIS
     Route: 065
  15. TPN [AMINO ACIDS NOS;CARBOHYDRATES NOS;MINERALS NOS;VITAMINS NOS] [Concomitant]
     Active Substance: AMINO ACIDS\CARBOHYDRATES\MINERALS\VITAMINS
     Indication: PRODUCT USED FOR UNKNOWN INDICATION
     Dosage: 1440 MILLILITER, QD
     Route: 065
  16. VITAMIN B12 [VITAMIN B12 NOS] [Concomitant]
     Active Substance: CYANOCOBALAMIN
     Indication: PRODUCT USED FOR UNKNOWN INDICATION
     Dosage: 1200 MILLIGRAM, QD
     Route: 048
  17. CIPRO [Concomitant]
     Active Substance: CIPROFLOXACIN HYDROCHLORIDE
     Indication: GASTROINTESTINAL BACTERIAL OVERGROWTH
     Dosage: 250 MILLIGRAM, 4 TIMES A DAY
     Route: 048
  18. TEDUGLUTIDE [Suspect]
     Active Substance: TEDUGLUTIDE
     Indication: SHORT-BOWEL SYNDROME
     Dosage: 2.25 MILLIGRAM, 1X/DAY:QD
     Route: 065
     Dates: start: 20160815
  19. MAGNESIUM [Concomitant]
     Active Substance: MAGNESIUM
     Indication: PRODUCT USED FOR UNKNOWN INDICATION
     Dosage: 7 GRAM, 1/WEEK
     Route: 065
  20. RL [Concomitant]
     Indication: PRODUCT USED FOR UNKNOWN INDICATION
     Dosage: UNK
     Route: 042
  21. TYLENOL [Concomitant]
     Active Substance: ACETAMINOPHEN
     Indication: PRODUCT USED FOR UNKNOWN INDICATION
     Dosage: UNK, PRN
     Route: 065
  22. NORMAL SALINE [Concomitant]
     Active Substance: SODIUM CHLORIDE
     Indication: PRODUCT USED FOR UNKNOWN INDICATION
     Dosage: UNK, Q2WEEKS
     Route: 042
  23. AMLODIPINE [Concomitant]
     Active Substance: AMLODIPINE BESYLATE
     Indication: PRODUCT USED FOR UNKNOWN INDICATION
     Dosage: 10 MILLIGRAM, QD
     Route: 048

REACTIONS (33)
  - Diarrhoea [Not Recovered/Not Resolved]
  - Blood magnesium decreased [Unknown]
  - Blood zinc decreased [Unknown]
  - Pruritus [Recovered/Resolved]
  - Abdominal distension [Not Recovered/Not Resolved]
  - Abdominal discomfort [Unknown]
  - Injection site pain [Recovered/Resolved]
  - Product dose omission issue [Unknown]
  - Gastrointestinal pain [Unknown]
  - Urticaria [Recovering/Resolving]
  - Hunger [Unknown]
  - Pneumonia [Unknown]
  - Inflammatory bowel disease [Unknown]
  - Condition aggravated [Unknown]
  - Abdominal pain upper [Not Recovered/Not Resolved]
  - Lung neoplasm malignant [Unknown]
  - Hospitalisation [Unknown]
  - Small intestinal obstruction [Unknown]
  - Polyp [Unknown]
  - Injection site pruritus [Not Recovered/Not Resolved]
  - Injection site erythema [Recovered/Resolved]
  - Rash [Unknown]
  - Peripheral swelling [Not Recovered/Not Resolved]
  - Injection site mass [Recovered/Resolved]
  - Injection site swelling [Unknown]
  - Abdominal pain [Unknown]
  - Joint swelling [Not Recovered/Not Resolved]
  - Gastrointestinal infection [Recovered/Resolved]
  - Fatigue [Unknown]
  - Infusion site erythema [Recovering/Resolving]
  - Muscle spasms [Unknown]
  - Hypersensitivity [Recovered/Resolved]
  - Dyspnoea [Unknown]

NARRATIVE: CASE EVENT DATE: 201912
